FAERS Safety Report 11292410 (Version 1)
Quarter: 2015Q3

REPORT INFORMATION
  Report Type: Spontaneous
  Country: US (occurrence: US)
  Receive Date: 20150722
  Receipt Date: 20150722
  Transmission Date: 20151125
  Serious: Yes (Other)
  Sender: FDA-Public Use
  Company Number: US-PFIZER INC-2015238052

PATIENT
  Age: 23 Year
  Sex: Female

DRUGS (2)
  1. PHENYTOIN. [Suspect]
     Active Substance: PHENYTOIN
     Indication: GENERALISED TONIC-CLONIC SEIZURE
     Dosage: 300 MG, 1X/DAY (NIGHTLY)
  2. CARBAMAZEPINE. [Concomitant]
     Active Substance: CARBAMAZEPINE
     Indication: GENERALISED TONIC-CLONIC SEIZURE
     Dosage: 200 MG, 2X/DAY
     Dates: start: 19831215

REACTIONS (8)
  - Pyrexia [Unknown]
  - Lymphadenopathy [Unknown]
  - Dermatitis exfoliative [Unknown]
  - Lymphocyte morphology abnormal [Unknown]
  - Rash maculo-papular [Unknown]
  - Drug-induced liver injury [Recovering/Resolving]
  - Coma hepatic [Recovering/Resolving]
  - White blood cell count increased [Unknown]
